FAERS Safety Report 19284842 (Version 1)
Quarter: 2021Q2

REPORT INFORMATION
  Report Type: Spontaneous
  Country: NL (occurrence: NL)
  Receive Date: 20210521
  Receipt Date: 20210521
  Transmission Date: 20210717
  Serious: Yes (Hospitalization)
  Sender: FDA-Public Use
  Company Number: NVSC2021NL105864

PATIENT
  Age: 84 Year
  Sex: Male

DRUGS (1)
  1. LEUPRORELIN [Suspect]
     Active Substance: LEUPROLIDE ACETATE
     Indication: PROSTATE CANCER
     Dosage: 22.5 MG, Q3W (EVERY 3 MONTHS)
     Route: 058
     Dates: start: 20210202

REACTIONS (1)
  - Rectal neoplasm [Recovering/Resolving]

NARRATIVE: CASE EVENT DATE: 20210427
